FAERS Safety Report 20978734 (Version 2)
Quarter: 2022Q3

REPORT INFORMATION
  Report Type: Spontaneous
  Country: US (occurrence: US)
  Receive Date: 20220619
  Receipt Date: 20220804
  Transmission Date: 20221026
  Serious: No
  Sender: FDA-Public Use
  Company Number: US-JNJFOC-20220631706

PATIENT
  Sex: Male

DRUGS (3)
  1. ZYTIGA [Suspect]
     Active Substance: ABIRATERONE ACETATE
     Indication: Product used for unknown indication
     Dosage: 4 - 250MG TABLETS DAILY
     Route: 048
     Dates: end: 20220118
  2. ZYTIGA [Suspect]
     Active Substance: ABIRATERONE ACETATE
     Route: 048
     Dates: start: 20220721
  3. LUPRON [Concomitant]
     Active Substance: LEUPROLIDE ACETATE
     Indication: Neoplasm malignant
     Dosage: ? //2021 TREATMENT STARTED

REACTIONS (3)
  - Fungal infection [Recovered/Resolved]
  - Feeling abnormal [Recovered/Resolved]
  - Immune system disorder [Recovered/Resolved]
